FAERS Safety Report 11125482 (Version 2)
Quarter: 2016Q1

REPORT INFORMATION
  Report Type: Spontaneous
  Country: US (occurrence: US)
  Receive Date: 20150520
  Receipt Date: 20160111
  Transmission Date: 20160525
  Serious: No
  Sender: FDA-Public Use
  Company Number: US-PFIZER INC-2015165674

PATIENT
  Age: 51 Year
  Sex: Female

DRUGS (2)
  1. IBRANCE [Suspect]
     Active Substance: PALBOCICLIB
     Dosage: 75 MG, UNK
     Route: 048
     Dates: start: 20150225
  2. IBRANCE [Suspect]
     Active Substance: PALBOCICLIB
     Dosage: 125 MG, DAILY (ON DAYS 1-21 FOLLOWED BY 7 DAYS OFF;)
     Route: 048
     Dates: start: 20150428

REACTIONS (6)
  - Bone pain [Unknown]
  - Glossodynia [Unknown]
  - Abdominal pain upper [Unknown]
  - Drug dose omission [Unknown]
  - Dyspnoea [Unknown]
  - Fibromyalgia [Unknown]
